FAERS Safety Report 5821510-6 (Version None)
Quarter: 2008Q3

REPORT INFORMATION
  Report Type: 
  Country: None (occurrence: None)
  Receive Date: 20080724
  Receipt Date: 20080715
  Transmission Date: 20090109
  Serious: No
  Sender: FDA-Public Use
  Company Number: DE-AMGEN-UK291064

PATIENT
  Sex: Female
  Weight: 71 kg

DRUGS (1)
  1. VECTIBIX [Suspect]
     Indication: COLORECTAL CANCER
     Route: 042
     Dates: start: 20080602

REACTIONS (1)
  - PLATELET COUNT DECREASED [None]
